FAERS Safety Report 6140874-X (Version None)
Quarter: 2009Q2

REPORT INFORMATION
  Report Type: 
  Country: None (occurrence: None)
  Receive Date: 20090402
  Receipt Date: 20080312
  Transmission Date: 20091009
  Serious: No
  Sender: FDA-Public Use
  Company Number: US-KINGPHARMUSA00001-K200800310

PATIENT
  Sex: Female

DRUGS (6)
  1. SKELAXIN [Suspect]
     Indication: BACK PAIN
     Dosage: 800 MG, QHS
     Dates: start: 20080306, end: 20080307
  2. SKELAXIN [Suspect]
     Indication: MUSCLE SPASMS
  3. DIOVAN  /01319601/ [Concomitant]
     Dosage: UNK, QD
  4. PLAVIX [Concomitant]
     Dosage: UNK, QD
  5. PLENDIL [Concomitant]
     Dosage: 5 MG, QD
  6. ZOCOR [Concomitant]
     Dosage: UNK, QD

REACTIONS (3)
  - DRUG INEFFECTIVE [None]
  - INSOMNIA [None]
  - NERVOUSNESS [None]
